FAERS Safety Report 4378879-1 (Version None)
Quarter: 2004Q2

REPORT INFORMATION
  Report Type: 
  Country: None (occurrence: None)
  Receive Date: 20040610
  Receipt Date: 20040526
  Transmission Date: 20050107
  Serious: Yes (Hospitalization)
  Sender: FDA-Public Use
  Company Number: 2004AP02728

PATIENT
  Age: 60 Year
  Sex: Female

DRUGS (5)
  1. NOLVADEX [Suspect]
     Indication: BREAST CANCER
     Dosage: 20 MG DAILY PO
     Route: 048
     Dates: start: 20040325, end: 20040508
  2. EPIRUBICIN HYDROCHLORIDE [Concomitant]
  3. CYCLOPHOSPHAMIDE [Concomitant]
  4. PYDOXAL [Concomitant]
  5. MAGNESIUM OXIDE [Concomitant]

REACTIONS (8)
  - COUGH [None]
  - DRUG HYPERSENSITIVITY [None]
  - DRUG INEFFECTIVE [None]
  - LYMPHANGIOSIS CARCINOMATOSA [None]
  - LYMPHATIC DISORDER [None]
  - NASOPHARYNGITIS [None]
  - POSTOPERATIVE WOUND COMPLICATION [None]
  - PYREXIA [None]
